FAERS Safety Report 13984456 (Version 1)
Quarter: 2017Q3

REPORT INFORMATION
  Report Type: Not Available
  Country: JP (occurrence: JP)
  Receive Date: 20170918
  Receipt Date: 20170918
  Transmission Date: 20171128
  Serious: Yes (Hospitalization, Other)
  Sender: FDA-Public Use
  Company Number: US-AKORN-68092

PATIENT
  Age: 29 Year
  Sex: Female

DRUGS (1)
  1. AZASITE (AZITHROMYCIN OPHTHALMIC SOLUTION) [Suspect]
     Active Substance: AZITHROMYCIN

REACTIONS (3)
  - Viral infection [None]
  - Pharyngitis [None]
  - Herpangina [None]
